FAERS Safety Report 9324643 (Version 2)
Quarter: 2013Q4

REPORT INFORMATION
  Report Type: Spontaneous
  Country: US (occurrence: US)
  Receive Date: 20130603
  Receipt Date: 20131104
  Transmission Date: 20140711
  Serious: Yes (Hospitalization)
  Sender: FDA-Public Use
  Company Number: US-B.I. PHARMACEUTICALS,INC./RIDGEFIELD-2013-BI-15295BP

PATIENT
  Sex: Male
  Weight: 68.04 kg

DRUGS (16)
  1. PRADAXA [Suspect]
     Indication: ATRIAL FIBRILLATION
     Dosage: 300 MG
     Route: 048
     Dates: start: 20110921, end: 20111217
  2. CENTRUM SILVER [Concomitant]
     Route: 048
  3. FOLIC ACID [Concomitant]
     Dosage: 1 MG
     Route: 048
  4. ATENOLOL [Concomitant]
     Dosage: 25 MG
     Route: 048
  5. ISOSORB [Concomitant]
     Dosage: 120 MG
     Route: 048
  6. DOXAZOSIN [Concomitant]
     Dosage: 4 MG
     Route: 048
  7. TRAVATAN [Concomitant]
     Route: 031
  8. NORVASC [Concomitant]
     Dosage: 2.5 MG
     Route: 048
  9. FLUNISOLIDE [Concomitant]
  10. LASIX [Concomitant]
     Dosage: 20 MG
     Route: 048
  11. K-DUR [Concomitant]
     Dosage: 10 MEQ
     Route: 048
  12. TRIAMTERENE/HYDROCHLOROTHIAZIDE [Concomitant]
     Dosage: 18.75 MG
     Route: 048
  13. ROSUVASTATIN [Concomitant]
     Dosage: 40 MG
     Route: 048
  14. DORZOLAMIDE HCL [Concomitant]
     Route: 031
  15. EXELON [Concomitant]
     Route: 062
  16. BRIMONIDINE [Concomitant]
     Route: 031

REACTIONS (2)
  - Upper gastrointestinal haemorrhage [Unknown]
  - Anaemia [Unknown]
